FAERS Safety Report 4643553-0 (Version None)
Quarter: 2005Q2

REPORT INFORMATION
  Report Type: 
  Country: None (occurrence: None)
  Receive Date: 20050425
  Receipt Date: 20050413
  Transmission Date: 20051028
  Serious: Yes (Other)
  Sender: FDA-Public Use
  Company Number: AU-JNJFOC-20030703310

PATIENT
  Sex: Female

DRUGS (1)
  1. INFLIXIMAB [Suspect]
     Indication: RHEUMATOID ARTHRITIS
     Dosage: 180-200 MG PER INFUSION.
     Route: 042
     Dates: start: 20021001, end: 20030701

REACTIONS (1)
  - LUPUS-LIKE SYNDROME [None]
